FAERS Safety Report 8172948-6 (Version None)
Quarter: 2012Q1

REPORT INFORMATION
  Report Type: 
  Country: None (occurrence: None)
  Receive Date: 20120229
  Receipt Date: 20120217
  Transmission Date: 20120608
  Serious: Yes (Hospitalization, Disabling)
  Sender: FDA-Public Use
  Company Number: FR-BRISTOL-MYERS SQUIBB COMPANY-16348989

PATIENT
  Age: 70 Year
  Sex: Female

DRUGS (2)
  1. TAXOL [Suspect]
     Indication: BREAST CANCER METASTATIC
     Dates: start: 20110701, end: 20111207
  2. AVASTIN [Concomitant]

REACTIONS (3)
  - METASTASES TO MENINGES [None]
  - PARAPLEGIA [None]
  - PARALYSIS [None]
